FAERS Safety Report 4430464-9 (Version None)
Quarter: 2004Q3

REPORT INFORMATION
  Report Type: 
  Country: None (occurrence: None)
  Receive Date: 20040721
  Receipt Date: 20040513
  Transmission Date: 20050211
  Serious: Yes (Life-Threatening, Disabling)
  Sender: FDA-Public Use
  Company Number: WAES 0405USA01030

PATIENT
  Age: 76 Year
  Sex: Female

DRUGS (3)
  1. VIOXX [Suspect]
     Indication: POST PROCEDURAL PAIN
     Dosage: 50MG/DAILY/PO
     Route: 048
     Dates: start: 20040505, end: 20040506
  2. LOTREL [Concomitant]
  3. ATENOLOL [Concomitant]

REACTIONS (3)
  - ASTHENIA [None]
  - FATIGUE [None]
  - HYPERTENSION [None]
